FAERS Safety Report 4722957-1 (Version None)
Quarter: 2005Q3

REPORT INFORMATION
  Report Type: 
  Country: None (occurrence: None)
  Receive Date: 20050722
  Receipt Date: 20030409
  Transmission Date: 20060218
  Serious: Yes (Disabling)
  Sender: FDA-Public Use
  Company Number: US-MERCK-0304USA01088

PATIENT
  Sex: Female

DRUGS (1)
  1. VIOXX [Suspect]
     Route: 048

REACTIONS (7)
  - ADVERSE EVENT [None]
  - ANXIETY [None]
  - DISABILITY [None]
  - ECONOMIC PROBLEM [None]
  - INJURY [None]
  - LOSS OF EMPLOYMENT [None]
  - PAIN [None]
